FAERS Safety Report 11165328 (Version 1)
Quarter: 2015Q2

REPORT INFORMATION
  Report Type: Spontaneous
  Country: SE (occurrence: SE)
  Receive Date: 20150604
  Receipt Date: 20150604
  Transmission Date: 20150821
  Serious: Yes (Hospitalization, Other)
  Sender: FDA-Public Use
  Company Number: SE-ASTRAZENECA-2015SE52513

PATIENT
  Age: 63 Year
  Sex: Male

DRUGS (1)
  1. CAPRELSA [Suspect]
     Active Substance: VANDETANIB
     Indication: MEDULLARY THYROID CANCER
     Route: 048
     Dates: start: 20150316, end: 20150331

REACTIONS (2)
  - Staphylococcal sepsis [Unknown]
  - Bone abscess [Unknown]

NARRATIVE: CASE EVENT DATE: 20150331
